FAERS Safety Report 8128196-9 (Version None)
Quarter: 2011Q4

REPORT INFORMATION
  Report Type: 
  Country: None (occurrence: None)
  Receive Date: 20111227
  Receipt Date: 20110929
  Transmission Date: 20120403
  Serious: No
  Sender: FDA-Public Use
  Company Number: PHHY2011US59669

PATIENT
  Age: 49 Year
  Sex: Female
  Weight: 60 kg

DRUGS (9)
  1. CITRACAL + D (CALCIUM CITRATE ERGOCALCIFEROL) [Concomitant]
  2. PRAVACHOL [Concomitant]
  3. VITAMIN D (ERGOCALCIFEROL) CAPSULE [Concomitant]
  4. OMEGA 3 (FISH OIL) CAPSULE [Concomitant]
  5. GILENYA [Suspect]
     Indication: MULTIPLE SCLEROSIS
     Dosage: 0.5 MG, QD, ORAL
     Route: 048
     Dates: start: 20110620
  6. BACLOFEN (BACLOFEN) TABLET --/--/2007 TO UNK [Concomitant]
  7. PROVIGIL (MODAFINIL) TABLET, 200 MG --/--/2006 TO UNK [Concomitant]
  8. TIZANIDINE (TIZANIDINE) TABLET, 4 MG 05/--/2011 TO UNK [Concomitant]
  9. PRIMIDONE (PRIMIDONE) TABLET [Concomitant]

REACTIONS (2)
  - MUSCLE TIGHTNESS [None]
  - BACK PAIN [None]
